FAERS Safety Report 15455279 (Version 1)
Quarter: 2018Q3

REPORT INFORMATION
  Report Type: Spontaneous
  Country: US (occurrence: US)
  Receive Date: 20180925
  Receipt Date: 20180925
  Transmission Date: 20181010
  Serious: Yes (Hospitalization)
  Sender: FDA-Public Use
  Company Number: None

PATIENT
  Age: 45 Year
  Sex: Female

DRUGS (2)
  1. SIMPONI [Suspect]
     Active Substance: GOLIMUMAB
     Indication: RHEUMATOID ARTHRITIS
     Route: 058
     Dates: start: 20170220
  2. SIMPONI [Suspect]
     Active Substance: GOLIMUMAB
     Indication: RHEUMATOID FACTOR
     Route: 058
     Dates: start: 20170220

REACTIONS (5)
  - Maxillofacial operation [None]
  - Nephrolithiasis [None]
  - Urinary tract infection [None]
  - Sepsis [None]
  - Parathyroidectomy [None]

NARRATIVE: CASE EVENT DATE: 20180531
